FAERS Safety Report 20629104 (Version 9)
Quarter: 2023Q4

REPORT INFORMATION
  Report Type: Report from Study
  Country: JP (occurrence: JP)
  Receive Date: 20220323
  Receipt Date: 20231130
  Transmission Date: 20240110
  Serious: Yes (Death)
  Sender: FDA-Public Use
  Company Number: JP-PFIZER INC-202200452143

PATIENT
  Age: 85 Year
  Sex: Male
  Weight: 59 kg

DRUGS (15)
  1. VYNDAQEL [Suspect]
     Active Substance: TAFAMIDIS MEGLUMINE
     Indication: Cardiac amyloidosis
     Dosage: 80 MG, 1X/DAY
     Route: 048
     Dates: start: 20190829, end: 20220123
  2. SPIRONOLACTONE [Concomitant]
     Active Substance: SPIRONOLACTONE
     Indication: Cardiac failure
     Dosage: UNK
     Route: 048
     Dates: start: 20190718, end: 20220121
  3. SAMSCA [Concomitant]
     Active Substance: TOLVAPTAN
     Indication: Cardiac failure
     Dosage: UNK
     Route: 048
     Dates: start: 20211014, end: 20220122
  4. SAMSCA [Concomitant]
     Active Substance: TOLVAPTAN
     Indication: Cardiac amyloidosis
  5. AZOSEMIDE [Concomitant]
     Active Substance: AZOSEMIDE
     Indication: Cardiac failure
     Dosage: UNK
     Route: 048
     Dates: start: 20211014, end: 20220122
  6. AZOSEMIDE [Concomitant]
     Active Substance: AZOSEMIDE
     Indication: Cardiac amyloidosis
  7. JARDIANCE [Concomitant]
     Active Substance: EMPAGLIFLOZIN
     Indication: Cardiac failure
     Dosage: UNK
     Route: 048
     Dates: start: 20211014, end: 20220122
  8. JARDIANCE [Concomitant]
     Active Substance: EMPAGLIFLOZIN
     Indication: Cardiac amyloidosis
  9. ELIQUIS [Concomitant]
     Active Substance: APIXABAN
     Indication: Anticoagulant therapy
     Dosage: 5 MG
     Route: 048
     Dates: start: 20210114, end: 20220122
  10. ELIQUIS [Concomitant]
     Active Substance: APIXABAN
     Indication: Cardiac amyloidosis
  11. ROZEREM [Concomitant]
     Active Substance: RAMELTEON
     Indication: Insomnia
     Dosage: 8 MG
     Route: 048
     Dates: start: 20181227, end: 20220121
  12. RILMAZAFONE HYDROCHLORIDE [Concomitant]
     Active Substance: RILMAZAFONE HYDROCHLORIDE
     Indication: Insomnia
     Dosage: 2 MG
     Route: 048
     Dates: start: 20181227, end: 20220121
  13. LANSOPRAZOLE [Concomitant]
     Active Substance: LANSOPRAZOLE
     Indication: Prophylaxis against gastrointestinal ulcer
     Dosage: 15 MG
     Route: 048
     Dates: start: 20181227, end: 20220122
  14. FEBUXOSTAT [Concomitant]
     Active Substance: FEBUXOSTAT
     Indication: Hyperuricaemia
     Dosage: 10 MG
     Route: 048
     Dates: start: 20181227, end: 20220122
  15. ROSUVASTATIN CALCIUM [Concomitant]
     Active Substance: ROSUVASTATIN CALCIUM
     Indication: Hypercholesterolaemia
     Dosage: 10 MG
     Route: 048
     Dates: start: 20190926, end: 20220122

REACTIONS (1)
  - Death [Fatal]

NARRATIVE: CASE EVENT DATE: 20220123
